FAERS Safety Report 4922693-2 (Version None)
Quarter: 2006Q1

REPORT INFORMATION
  Report Type: 
  Country: None (occurrence: None)
  Receive Date: 20060224
  Receipt Date: 20050310
  Transmission Date: 20060701
  Serious: Yes (Other)
  Sender: FDA-Public Use
  Company Number: PT-ABBOTT-05P-130-0293826-00

PATIENT
  Sex: Female
  Weight: 73 kg

DRUGS (7)
  1. KLACID [Suspect]
     Indication: BRONCHITIS
     Route: 048
     Dates: start: 20050218, end: 20050218
  2. CLENBUTEROL [Concomitant]
     Indication: BRONCHITIS
     Route: 048
     Dates: start: 20050218, end: 20050218
  3. LOSARTAN POTASSIUM [Concomitant]
     Indication: HYPERTENSION
     Route: 048
     Dates: start: 19990101
  4. CHLORTHALIDONE [Concomitant]
     Indication: HYPERTENSION
     Route: 048
     Dates: start: 19650101
  5. DIOSMIN [Concomitant]
     Indication: DRUG USE FOR UNKNOWN INDICATION
     Route: 048
     Dates: start: 20020101
  6. BROTIZOLAM [Concomitant]
     Indication: DRUG USE FOR UNKNOWN INDICATION
     Route: 048
     Dates: start: 19980101
  7. AMBROXOL [Concomitant]
     Indication: BRONCHITIS
     Route: 048
     Dates: start: 20050218, end: 20050218

REACTIONS (4)
  - EYELID OEDEMA [None]
  - PALPITATIONS [None]
  - TREMOR [None]
  - URTICARIA [None]
